FAERS Safety Report 10149136 (Version 2)
Quarter: 2014Q2

REPORT INFORMATION
  Report Type: Spontaneous
  Country: BR (occurrence: BR)
  Receive Date: 20140502
  Receipt Date: 20140604
  Transmission Date: 20141212
  Serious: Yes (Other)
  Sender: FDA-Public Use
  Company Number: BR-AMGEN INC.-BRASP2014031677

PATIENT
  Age: 49 Year
  Sex: Male
  Weight: 98 kg

DRUGS (3)
  1. ENBREL [Suspect]
     Indication: RHEUMATOID ARTHRITIS
     Dosage: 25 MG, 2X/WEEK
     Route: 058
     Dates: start: 201110
  2. ENBREL [Suspect]
     Dosage: UNK
     Route: 065
     Dates: end: 20140407
  3. ENBREL [Suspect]
     Dosage: UNK
     Route: 065
     Dates: start: 201405

REACTIONS (2)
  - Osteoarthritis [Unknown]
  - Diabetes mellitus [Unknown]
